FAERS Safety Report 7761338-3 (Version None)
Quarter: 2011Q3

REPORT INFORMATION
  Report Type: 
  Country: None (occurrence: None)
  Receive Date: 20110920
  Receipt Date: 20110914
  Transmission Date: 20111222
  Serious: No
  Sender: FDA-Public Use
  Company Number: US-PFIZER INC-2011209908

PATIENT
  Sex: Female
  Weight: 59.9 kg

DRUGS (10)
  1. DYAZIDE [Concomitant]
     Indication: HYPERTENSION
     Dosage: 25/37.5 MG, UNK
  2. GABAPENTIN [Concomitant]
     Dosage: UNK
  3. LISINOPRIL [Concomitant]
     Indication: HYPERTENSION
     Dosage: 5 MG, UNK
  4. CRESTOR [Concomitant]
     Indication: BLOOD CHOLESTEROL INCREASED
     Dosage: UNK
  5. AMBIEN [Concomitant]
     Indication: SLEEP DISORDER
     Dosage: UNK
  6. ESTRING [Suspect]
     Indication: MENOPAUSAL SYMPTOMS
  7. MULTI-VITAMINS [Concomitant]
     Dosage: UNK
  8. ESTRING [Suspect]
     Indication: OFF LABEL USE
     Dosage: UNK
     Route: 067
     Dates: start: 20090601
  9. ACETYLSALICYLIC ACID [Concomitant]
     Dosage: 81 MG, UNK
  10. OMEPRAZOLE [Concomitant]
     Dosage: 20 MG, UNK

REACTIONS (1)
  - DRUG INEFFECTIVE FOR UNAPPROVED INDICATION [None]
